FAERS Safety Report 14110488 (Version 1)
Quarter: 2017Q4

REPORT INFORMATION
  Report Type: Report from Study
  Country: US (occurrence: US)
  Receive Date: 20171020
  Receipt Date: 20171020
  Transmission Date: 20180321
  Serious: Yes (Other)
  Sender: FDA-Public Use
  Company Number: US-UCBSA-2017041335

PATIENT
  Age: 75 Year
  Sex: Male

DRUGS (3)
  1. CARBIDOPA AND LEVODOPA [Concomitant]
     Active Substance: CARBIDOPA\LEVODOPA
     Indication: PRODUCT USED FOR UNKNOWN INDICATION
  2. ROTIGOTINE [Suspect]
     Active Substance: ROTIGOTINE
     Indication: PARKINSON^S DISEASE
     Dosage: UNK
  3. RASAGILINE. [Concomitant]
     Active Substance: RASAGILINE
     Indication: PRODUCT USED FOR UNKNOWN INDICATION

REACTIONS (16)
  - Choking [Unknown]
  - Insomnia [Unknown]
  - Disturbance in attention [Unknown]
  - Dysphagia [Unknown]
  - Constipation [Unknown]
  - Pain [Unknown]
  - Gastrointestinal motility disorder [Unknown]
  - Anosmia [Unknown]
  - Panic attack [Unknown]
  - Sensory loss [Unknown]
  - Drooling [Unknown]
  - Micturition urgency [Unknown]
  - Dysgeusia [Unknown]
  - Anxiety [Unknown]
  - Depressed mood [Unknown]
  - Nocturia [Unknown]
